FAERS Safety Report 6207092-8 (Version None)
Quarter: 2009Q2

REPORT INFORMATION
  Report Type: 
  Country: None (occurrence: None)
  Receive Date: 20090528
  Receipt Date: 20090522
  Transmission Date: 20091009
  Serious: Yes (Death, Disabling)
  Sender: FDA-Public Use
  Company Number: JP-BAYER-200911634BYL

PATIENT
  Sex: Male

DRUGS (1)
  1. FLUDARA [Suspect]
     Indication: STEM CELL TRANSPLANT
     Dosage: AS USED: 255 MG/M2  UNIT DOSE: 50 MG
     Route: 042

REACTIONS (1)
  - RENAL IMPAIRMENT [None]
